FAERS Safety Report 5504499-9 (Version None)
Quarter: 2007Q4

REPORT INFORMATION
  Report Type: 
  Country: None (occurrence: None)
  Receive Date: 20071031
  Receipt Date: 20071021
  Transmission Date: 20080405
  Serious: Yes (Other)
  Sender: FDA-Public Use
  Company Number: 2007333883

PATIENT
  Sex: Female

DRUGS (1)
  1. LISTERINE (MENTHOL, METHYL SALICYLATE, EUCALYPTOL, THYMOL [Suspect]
     Dosage: ORAL
     Route: 048
     Dates: start: 20071018

REACTIONS (8)
  - CIRCUMORAL OEDEMA [None]
  - DYSGEUSIA [None]
  - FEELING ABNORMAL [None]
  - ORAL DISORDER [None]
  - PAIN [None]
  - PHARYNGOLARYNGEAL PAIN [None]
  - PYREXIA [None]
  - RASH ERYTHEMATOUS [None]
